FAERS Safety Report 8915603 (Version 1)
Quarter: 2012Q4

REPORT INFORMATION
  Report Type: 
  Country: US (occurrence: US)
  Receive Date: 20121119
  Receipt Date: 20121119
  Transmission Date: 20130627
  Serious: No
  Sender: FDA-Public Use
  Company Number: US-FOUGERA-2011FO000036

PATIENT
  Age: 45 Year
  Sex: Female

DRUGS (2)
  1. CLOBETASOL PROPIONATE [Suspect]
     Indication: ECZEMA
     Route: 061
     Dates: start: 201111
  2. CLOBETASOL PROPIONATE [Suspect]
     Indication: DERMATITIS CONTACT
     Route: 061
     Dates: start: 201111

REACTIONS (3)
  - Pain [Recovered/Resolved]
  - Peripheral coldness [Not Recovered/Not Resolved]
  - Skin discolouration [Not Recovered/Not Resolved]
